FAERS Safety Report 4558289-4 (Version None)
Quarter: 2005Q1

REPORT INFORMATION
  Report Type: 
  Country: None (occurrence: None)
  Receive Date: 20050121
  Receipt Date: 20050111
  Transmission Date: 20050727
  Serious: Yes (Other)
  Sender: FDA-Public Use
  Company Number: GB-JNJFOC-20041106356

PATIENT
  Sex: Female
  Weight: 61 kg

DRUGS (1)
  1. ORTHO EVRA [Suspect]
     Indication: CONTRACEPTION
     Route: 062
     Dates: start: 20040623, end: 20041120

REACTIONS (2)
  - GRAND MAL CONVULSION [None]
  - PREMENSTRUAL SYNDROME [None]
